FAERS Safety Report 24108331 (Version 4)
Quarter: 2025Q3

REPORT INFORMATION
  Report Type: Report from Study
  Country: CA (occurrence: CA)
  Receive Date: 20240718
  Receipt Date: 20250825
  Transmission Date: 20251020
  Serious: Yes (Other)
  Sender: TAKEDA
  Company Number: CA-TAKEDA-2024TUS072045

PATIENT
  Age: 45 Year
  Sex: Female

DRUGS (10)
  1. VEDOLIZUMAB [Suspect]
     Active Substance: VEDOLIZUMAB
     Indication: Colitis ulcerative
  2. VEDOLIZUMAB [Suspect]
     Active Substance: VEDOLIZUMAB
     Dosage: 300 MILLIGRAM, Q4WEEKS
     Dates: start: 20240821
  3. VEDOLIZUMAB [Suspect]
     Active Substance: VEDOLIZUMAB
     Dosage: 300 MILLIGRAM, Q4WEEKS
  4. VEDOLIZUMAB [Suspect]
     Active Substance: VEDOLIZUMAB
     Indication: Colitis ulcerative
     Dosage: 108 MILLIGRAM, Q2WEEKS
     Dates: start: 202407
  5. CIPROFLOXACIN [Concomitant]
     Active Substance: CIPROFLOXACIN
     Dosage: UNK UNK, BID
     Dates: start: 2024
  6. CITALOPRAM [Concomitant]
     Active Substance: CITALOPRAM
     Indication: Anxiety
  7. BUPROPION [Concomitant]
     Active Substance: BUPROPION
     Indication: Attention deficit hyperactivity disorder
  8. LOMOTIL [Concomitant]
     Active Substance: ATROPINE SULFATE\DIPHENOXYLATE HYDROCHLORIDE
  9. IMODIUM [Concomitant]
     Active Substance: LOPERAMIDE HYDROCHLORIDE
  10. CLONAZEPAM [Concomitant]
     Active Substance: CLONAZEPAM

REACTIONS (6)
  - Haematochezia [Recovered/Resolved]
  - Colitis ulcerative [Recovered/Resolved]
  - Frequent bowel movements [Recovering/Resolving]
  - Diarrhoea [Recovering/Resolving]
  - Off label use [Unknown]
  - Flatulence [Recovering/Resolving]

NARRATIVE: CASE EVENT DATE: 20240821
